FAERS Safety Report 7250736-2 (Version None)
Quarter: 2011Q1

REPORT INFORMATION
  Report Type: 
  Country: None (occurrence: None)
  Receive Date: 20110128
  Receipt Date: 20110121
  Transmission Date: 20110831
  Serious: Yes (Hospitalization)
  Sender: FDA-Public Use
  Company Number: US-B.I. PHARMACEUTICALS,INC./RIDGEFIELD-2011-BP-01515BP

PATIENT
  Age: 49 Year
  Sex: Female

DRUGS (8)
  1. DULCOLAX [Suspect]
     Indication: CONSTIPATION
     Dosage: 300 MG
     Route: 048
     Dates: start: 20101001
  2. IRON [Concomitant]
     Indication: SUPPLEMENTATION THERAPY
     Dosage: 450 MG
     Dates: start: 20100501
  3. ASA [Concomitant]
     Indication: ANTICOAGULANT THERAPY
     Dosage: 325 MG
     Dates: start: 20100501
  4. AMBIEN CR [Concomitant]
     Dates: start: 20101001
  5. VALIUM [Concomitant]
     Dosage: 10 MG
     Dates: start: 20101001
  6. MORPHINE [Concomitant]
     Dosage: 30 MG
     Dates: start: 20100501
  7. CRESTOR [Concomitant]
     Indication: CARDIAC DISORDER
     Dosage: 10 MG
     Dates: start: 20100501
  8. PRADAXA [Suspect]
     Indication: ANTICOAGULANT THERAPY
     Dosage: 300 MG
     Dates: start: 20101101

REACTIONS (6)
  - AMNESIA [None]
  - DEEP VEIN THROMBOSIS [None]
  - ANGIOGRAM ABNORMAL [None]
  - PERIPHERAL ARTERIAL OCCLUSIVE DISEASE [None]
  - ABDOMINAL PAIN [None]
  - FAECES DISCOLOURED [None]
